FAERS Safety Report 13746131 (Version 1)
Quarter: 2017Q3

REPORT INFORMATION
  Report Type: Spontaneous
  Country: US (occurrence: US)
  Receive Date: 20170712
  Receipt Date: 20170712
  Transmission Date: 20171127
  Serious: Yes (Hospitalization)
  Sender: FDA-Public Use
  Company Number: None

PATIENT
  Age: 17 Year
  Sex: Male
  Weight: 67.5 kg

DRUGS (1)
  1. DIVALPROEX [Suspect]
     Active Substance: DIVALPROEX SODIUM
     Indication: AFFECTIVE DISORDER
     Dosage: OTHER DOSE:MG/SQ M;?
     Route: 048
     Dates: end: 20170120

REACTIONS (2)
  - Lipase increased [None]
  - Amylase increased [None]

NARRATIVE: CASE EVENT DATE: 20170120
